FAERS Safety Report 17080248 (Version 3)
Quarter: 2020Q1

REPORT INFORMATION
  Report Type: Report from Study
  Country: US (occurrence: US)
  Receive Date: 20191127
  Receipt Date: 20200121
  Transmission Date: 20200409
  Serious: Yes (Death, Hospitalization, Other)
  Sender: FDA-Public Use
  Company Number: US-ROCHE-2468623

PATIENT
  Age: 64 Year
  Sex: Female
  Weight: 82.6 kg

DRUGS (11)
  1. GABAPENTIN. [Concomitant]
     Active Substance: GABAPENTIN
     Route: 065
  2. HYDROCORTISONE. [Concomitant]
     Active Substance: HYDROCORTISONE
     Route: 065
  3. EXCEDRIN MIGRAINE [Concomitant]
     Active Substance: ACETAMINOPHEN\ASPIRIN\CAFFEINE
     Route: 065
  4. LAC-HYDRIN [Concomitant]
     Active Substance: AMMONIUM LACTATE
     Route: 061
  5. LIBRAX [Concomitant]
     Active Substance: CHLORDIAZEPOXIDE HYDROCHLORIDE\CLIDINIUM BROMIDE
     Route: 065
  6. LIPITOR [Concomitant]
     Active Substance: ATORVASTATIN CALCIUM
     Route: 065
  7. MIRVASO [Concomitant]
     Active Substance: BRIMONIDINE TARTRATE
     Route: 061
  8. COBIMETINIB. [Suspect]
     Active Substance: COBIMETINIB
     Indication: ERDHEIM-CHESTER DISEASE
     Route: 048
     Dates: start: 20190911, end: 20191115
  9. CLINDAMYCIN. [Concomitant]
     Active Substance: CLINDAMYCIN
     Dosage: FOR 21 DAYS ON, THEN 7 DAYS OFF, IN A 28 DAY TREATMENT CYCLE
     Route: 061
  10. VENLAFAXINE [Concomitant]
     Active Substance: VENLAFAXINE HYDROCHLORIDE
     Route: 065
  11. VICODIN [Concomitant]
     Active Substance: ACETAMINOPHEN\HYDROCODONE BITARTRATE
     Route: 065

REACTIONS (13)
  - Death [Fatal]
  - Hypotension [Recovering/Resolving]
  - Dysphagia [Unknown]
  - Pneumonia [Unknown]
  - Sepsis [Unknown]
  - Hypoxia [Unknown]
  - Myocardial necrosis marker increased [Unknown]
  - Fall [Unknown]
  - Depressed level of consciousness [Unknown]
  - Pneumonia [Unknown]
  - Urinary tract infection [Unknown]
  - Acute respiratory failure [Unknown]
  - Pyrexia [Unknown]

NARRATIVE: CASE EVENT DATE: 20191105
